FAERS Safety Report 21383393 (Version 1)
Quarter: 2022Q3

REPORT INFORMATION
  Report Type: Spontaneous
  Country: GR (occurrence: GR)
  Receive Date: 20220927
  Receipt Date: 20220927
  Transmission Date: 20221026
  Serious: Yes (Life-Threatening)
  Sender: FDA-Public Use
  Company Number: None

PATIENT
  Age: 50 Year
  Sex: Female
  Weight: 63 kg

DRUGS (1)
  1. VEKLURY [Suspect]
     Active Substance: REMDESIVIR
     Indication: COVID-19 pneumonia
     Dosage: UNK
     Route: 042
     Dates: start: 20211112, end: 20211112

REACTIONS (4)
  - Tongue oedema [Recovering/Resolving]
  - Dry throat [Recovering/Resolving]
  - Lip oedema [Recovering/Resolving]
  - Aptyalism [Recovering/Resolving]

NARRATIVE: CASE EVENT DATE: 20211112
